FAERS Safety Report 23324237 (Version 2)
Quarter: 2024Q1

REPORT INFORMATION
  Report Type: Report from Study
  Country: US (occurrence: US)
  Receive Date: 20231221
  Receipt Date: 20240321
  Transmission Date: 20240410
  Serious: Yes (Other)
  Sender: FDA-Public Use
  Company Number: US-ABBVIE-5549187

PATIENT
  Age: 58 Year
  Sex: Female

DRUGS (3)
  1. HUMIRA [Suspect]
     Active Substance: ADALIMUMAB
     Indication: Rheumatoid arthritis
     Dosage: CITRATE FREE?40 MG FORM STRENGTH
     Route: 058
     Dates: start: 20221212
  2. HUMIRA [Suspect]
     Active Substance: ADALIMUMAB
     Dosage: START DATE 2023?CITRATE FREE?40 MG FORM STRENGTH
     Route: 058
  3. HUMIRA [Suspect]
     Active Substance: ADALIMUMAB
     Dosage: LAST ADMIN DATE 2023?CITRATE FREE?40 MG FORM STRENGTH
     Route: 058
     Dates: start: 20230106

REACTIONS (3)
  - Cholecystectomy [Recovering/Resolving]
  - Upper respiratory tract infection [Unknown]
  - COVID-19 [Unknown]

NARRATIVE: CASE EVENT DATE: 20231110
